FAERS Safety Report 18437352 (Version 1)
Quarter: 2020Q4

REPORT INFORMATION
  Report Type: Spontaneous
  Country: BE (occurrence: BE)
  Receive Date: 20201028
  Receipt Date: 20201028
  Transmission Date: 20210114
  Serious: Yes (Hospitalization)
  Sender: FDA-Public Use
  Company Number: BE-CUMBERLAND-2020-BE-000002

PATIENT
  Age: 23 Year
  Sex: Male

DRUGS (1)
  1. ACETADOTE [Suspect]
     Active Substance: ACETYLCYSTEINE
     Route: 042

REACTIONS (4)
  - Drug ineffective [Recovered/Resolved]
  - Oedema [Unknown]
  - Renal impairment [Recovered/Resolved]
  - Renal tubular necrosis [Unknown]
